FAERS Safety Report 18229171 (Version 11)
Quarter: 2025Q4

REPORT INFORMATION
  Report Type: Spontaneous
  Country: US (occurrence: US)
  Receive Date: 20200903
  Receipt Date: 20251120
  Transmission Date: 20260118
  Serious: No
  Sender: PFIZER
  Company Number: US-PFIZER INC-2020127963

PATIENT
  Age: 67 Year
  Sex: Female
  Weight: 82.585 kg

DRUGS (4)
  1. IBRANCE [Suspect]
     Active Substance: PALBOCICLIB
     Indication: Breast cancer female
     Dosage: 125 MG, DAILY
     Route: 048
     Dates: start: 202003
  2. IBRANCE [Suspect]
     Active Substance: PALBOCICLIB
     Dosage: 125 MG, CYCLIC
     Dates: start: 20230203
  3. IBRANCE [Suspect]
     Active Substance: PALBOCICLIB
     Dosage: 125 MG, DAILY, 1 TABLET FOR 21 DAYS AND THEN 7 DAYS PAUSE IN 28-DAYS CYCLE
     Route: 048
  4. FASLODEX [Suspect]
     Active Substance: FULVESTRANT
     Dosage: UNK

REACTIONS (4)
  - Arthralgia [Unknown]
  - White blood cell count abnormal [Unknown]
  - Rash maculo-papular [Unknown]
  - Laboratory test abnormal [Unknown]
